FAERS Safety Report 4380116-9 (Version None)
Quarter: 2004Q2

REPORT INFORMATION
  Report Type: 
  Country: None (occurrence: None)
  Receive Date: 20040614
  Receipt Date: 20040305
  Transmission Date: 20050107
  Serious: No
  Sender: FDA-Public Use
  Company Number: M04-341-061

PATIENT
  Age: 49 Year
  Sex: Female
  Weight: 73 kg

DRUGS (7)
  1. VELCADE [Suspect]
     Indication: MULTIPLE MYELOMA
     Dosage: 2.21 MG: INTRAVENOUS (NOT OTHERWISE SPECIFIED)
     Route: 042
     Dates: start: 20031117, end: 20040130
  2. LANSOPRAZOLE [Concomitant]
  3. METOPROLOL TARTRATE [Concomitant]
  4. OXYCODONE [Concomitant]
  5. OXYCODONE HCL [Concomitant]
  6. WARFARIN SODIUM [Concomitant]
  7. ZOLEDRONIC ACID [Concomitant]

REACTIONS (2)
  - NEUROPATHY [None]
  - PAIN IN EXTREMITY [None]
